FAERS Safety Report 12721710 (Version 1)
Quarter: 2016Q3

REPORT INFORMATION
  Report Type: Spontaneous
  Country: US (occurrence: US)
  Receive Date: 20160902
  Receipt Date: 20160902
  Transmission Date: 20161109
  Serious: Yes (Hospitalization)
  Sender: FDA-Public Use
  Company Number: None

PATIENT
  Age: 69 Year
  Sex: Female
  Weight: 118 kg

DRUGS (17)
  1. FLUTICASONE PROPIONATE (FLONASE) [Concomitant]
  2. METOPROLOL TARTRATE (LOPRESSOR) [Concomitant]
  3. POTASSIUM CHLORIDE ER (KLOR-CON M20) [Concomitant]
  4. LORAZEPAM (ATIVAN) [Concomitant]
  5. ATORVASTATIN CALCIUM (LIPITOR) [Concomitant]
  6. VICTOZA [Suspect]
     Active Substance: LIRAGLUTIDE
     Indication: TYPE 2 DIABETES MELLITUS
     Route: 058
     Dates: start: 20150406, end: 20160322
  7. LEVOXYZINE SODIUM (SYNTHROID, LEVOTHYROID) [Concomitant]
  8. CHLORTHALIDONE (HYGROTEN) [Concomitant]
  9. METFORMIN HCL (GLUCOPHAGE) [Concomitant]
  10. LANTUS [Concomitant]
     Active Substance: INSULIN GLARGINE
  11. PRILOSEC [Concomitant]
     Active Substance: OMEPRAZOLE MAGNESIUM
  12. DICYCLOMINE HCL (BENTYL) [Concomitant]
  13. VICTOZA [Concomitant]
     Active Substance: LIRAGLUTIDE
  14. PAROXETINE HCL (PAXIL) [Concomitant]
  15. ALTACE [Concomitant]
     Active Substance: RAMIPRIL
  16. EZETIMIBE (ZETIA) [Concomitant]
  17. GLIMEPIRIDE (AMARYL) [Concomitant]

REACTIONS (3)
  - Pancreatitis [None]
  - Diverticulitis [None]
  - Cholelithiasis [None]

NARRATIVE: CASE EVENT DATE: 20160322
